FAERS Safety Report 9189870 (Version 1)
Quarter: 2013Q1

REPORT INFORMATION
  Report Type: Spontaneous
  Country: US (occurrence: US)
  Receive Date: 20130326
  Receipt Date: 20130326
  Transmission Date: 20140127
  Serious: Yes (Other)
  Sender: FDA-Public Use
  Company Number: US-PFIZER INC-2013094344

PATIENT
  Sex: Female
  Weight: 96.15 kg

DRUGS (3)
  1. CHANTIX [Suspect]
     Indication: SMOKING CESSATION THERAPY
     Dosage: 0.5 MG, 2X/DAY
     Dates: start: 2010
  2. CHANTIX [Suspect]
     Dosage: 0.5 MG, 1X/DAY
  3. CHANTIX [Suspect]
     Dosage: 0.5 MG, UNK

REACTIONS (7)
  - Transient ischaemic attack [Unknown]
  - Blood pressure increased [Unknown]
  - Weight increased [Unknown]
  - Memory impairment [Unknown]
  - Vision blurred [Unknown]
  - Confusional state [Unknown]
  - Dyskinesia [Unknown]
